FAERS Safety Report 7471788-0 (Version None)
Quarter: 2011Q2

REPORT INFORMATION
  Report Type: 
  Country: None (occurrence: None)
  Receive Date: 20110511
  Receipt Date: 20100503
  Transmission Date: 20111010
  Serious: No
  Sender: FDA-Public Use
  Company Number: A0858587A

PATIENT
  Sex: Female

DRUGS (2)
  1. FEMARA [Suspect]
  2. TYKERB [Suspect]
     Indication: BREAST CANCER
     Dosage: 1250MG PER DAY
     Route: 048
     Dates: start: 20100405

REACTIONS (8)
  - DYSGEUSIA [None]
  - DIARRHOEA [None]
  - DECREASED APPETITE [None]
  - LOCAL SWELLING [None]
  - DRY SKIN [None]
  - CHILLS [None]
  - SKIN DISORDER [None]
  - MUSCULOSKELETAL STIFFNESS [None]
